FAERS Safety Report 8964650 (Version 1)
Quarter: 2012Q4

REPORT INFORMATION
  Report Type: 
  Country: DK (occurrence: DK)
  Receive Date: 20121214
  Receipt Date: 20121214
  Transmission Date: 20130627
  Serious: Yes (Hospitalization)
  Sender: FDA-Public Use
  Company Number: DK-BAYER-2012-131326

PATIENT
  Age: 62 Year
  Sex: Female

DRUGS (1)
  1. ULTRAVIST [Suspect]
     Indication: SCAN WITH CONTRAST
     Dosage: DOSIS: 85 ml, STYRKE: 370 mg iod/ml
     Route: 042
     Dates: start: 20121206, end: 20121206

REACTIONS (3)
  - Urticaria [Unknown]
  - Pruritus [Unknown]
  - Blister [Unknown]
